FAERS Safety Report 4454734-3 (Version None)
Quarter: 2004Q3

REPORT INFORMATION
  Report Type: 
  Country: None (occurrence: None)
  Receive Date: 20040826
  Receipt Date: 20040720
  Transmission Date: 20050211
  Serious: Yes (Hospitalization)
  Sender: FDA-Public Use
  Company Number: 238222

PATIENT
  Age: 41 Year
  Sex: Female
  Weight: 104.3 kg

DRUGS (3)
  1. NOVOLOG MIX 70/30 [Suspect]
     Indication: INSULIN-REQUIRING TYPE II DIABETES MELLITUS
     Dosage: 20 IU, BID, SUBCUTANEOUS
     Route: 058
     Dates: start: 20030101
  2. INDUO (INSULIN DELIVERY DEVICE) [Concomitant]
  3. NOVOFINE 30 (NEEDLE) [Concomitant]

REACTIONS (1)
  - ANAPHYLACTIC REACTION [None]
